FAERS Safety Report 18689538 (Version 1)
Quarter: 2020Q4

REPORT INFORMATION
  Report Type: Spontaneous
  Country: DE (occurrence: DE)
  Receive Date: 20201231
  Receipt Date: 20201231
  Transmission Date: 20210114
  Serious: Yes (Hospitalization, Other)
  Sender: FDA-Public Use
  Company Number: DE-TEVA-2020-DE-1863634

PATIENT
  Age: 98 Year
  Sex: Female
  Weight: 64 kg

DRUGS (5)
  1. ASS 100 [Suspect]
     Active Substance: ASPIRIN
     Dosage: 100 MILLIGRAM DAILY; 1-0-0-0
  2. TAVU 50MIKROGRAMM LATANOPROST + 5MG TIMOLOL PRO 1ML [Concomitant]
     Dosage: 1 DOSAGE FORMS DAILY; 1-0-0-0
     Route: 047
  3. LACTULOSE. [Suspect]
     Active Substance: LACTULOSE
     Route: 065
  4. CANDESARTAN/HYDROCHLOROTHIAZID [Concomitant]
     Active Substance: CANDESARTAN CILEXETIL\HYDROCHLOROTHIAZIDE
     Dosage: 1 DOSAGE FORMS DAILY; 16|12.5 MG, 1-0-0-0
  5. CRATAEGUS [Concomitant]
     Active Substance: HAWTHORN LEAF WITH FLOWER
     Dosage: 2 DOSAGE FORMS DAILY; 1-0-1-0

REACTIONS (2)
  - Diarrhoea [Unknown]
  - Haematochezia [Unknown]

NARRATIVE: CASE EVENT DATE: 20200928
